FAERS Safety Report 11228605 (Version 2)
Quarter: 2015Q3

REPORT INFORMATION
  Report Type: Spontaneous
  Country: DE (occurrence: None)
  Receive Date: 20150626
  Receipt Date: 20150701
  Transmission Date: 20151125
  Serious: Yes (Hospitalization)
  Sender: FDA-Public Use
  Company Number: SP09671

PATIENT
  Age: 72 Year
  Sex: Female
  Weight: 62 kg

DRUGS (5)
  1. BISOPROLOL [Concomitant]
     Active Substance: BISOPROLOL
  2. COMBIGAN [Concomitant]
     Active Substance: BRIMONIDINE TARTRATE\TIMOLOL MALEATE
  3. LATANOPROST. [Concomitant]
     Active Substance: LATANOPROST
  4. MOVIPREP [Suspect]
     Active Substance: ASCORBIC ACID\POLYETHYLENE GLYCOL 3350\POTASSIUM CHLORIDE\SODIUM ASCORBATE\SODIUM CHLORIDE\SODIUM SULFATE
     Indication: COLONOSCOPY
     Dosage: 2 SACHET (1 IN 1 ONCE)
     Route: 048
     Dates: start: 20150519
  5. ELIQUIS [Concomitant]
     Active Substance: APIXABAN

REACTIONS (13)
  - Gamma-glutamyltransferase increased [None]
  - Drug eruption [None]
  - Blood potassium increased [None]
  - Pneumonia aspiration [None]
  - Diarrhoea [None]
  - Hypertension [None]
  - Hemiplegia [None]
  - Oral candidiasis [None]
  - Cerebrovascular accident [None]
  - Cerebral infarction [None]
  - Dyslipidaemia [None]
  - Leukocytosis [None]
  - Haemolysis [None]

NARRATIVE: CASE EVENT DATE: 20150521
